FAERS Safety Report 4529874-0 (Version None)
Quarter: 2004Q4

REPORT INFORMATION
  Report Type: 
  Country: None (occurrence: None)
  Receive Date: 20041217
  Receipt Date: 20041119
  Transmission Date: 20050328
  Serious: Yes (Other)
  Sender: FDA-Public Use
  Company Number: FI-NOVOPROD-240652

PATIENT
  Age: 48 Year
  Sex: Female

DRUGS (1)
  1. ESTROFEM [Suspect]
     Indication: MENOPAUSAL SYMPTOMS
     Dosage: 1 MG, UNK
     Route: 048
     Dates: start: 20040921, end: 20041001

REACTIONS (3)
  - MUSCLE ENZYME INCREASED [None]
  - MYALGIA [None]
  - PARALYSIS [None]
